FAERS Safety Report 6750938-5 (Version None)
Quarter: 2010Q2

REPORT INFORMATION
  Report Type: 
  Country: None (occurrence: None)
  Receive Date: 20100602
  Receipt Date: 20100518
  Transmission Date: 20101027
  Serious: Yes (Other)
  Sender: FDA-Public Use
  Company Number: PHFR2010GB00604

PATIENT
  Sex: Male

DRUGS (19)
  1. CLOZARIL [Suspect]
     Indication: PARKINSON'S DISEASE
     Dosage: UNK
     Dates: start: 20061128
  2. CLOZARIL [Suspect]
     Dosage: 37.5 MG
     Dates: start: 20070625
  3. CLOPIDOGREL [Concomitant]
     Dosage: 75 MG, QD
  4. LORAZEPAM [Concomitant]
     Dosage: 1 MG, TID
  5. LORAZEPAM [Concomitant]
     Dosage: 1 MG, BID
  6. METHOTREXATE [Concomitant]
     Dosage: 2.5 MG, QW
  7. FOLIC ACID [Concomitant]
     Dosage: 5 MG, QW
  8. RANITIDINE [Concomitant]
     Dosage: 300 MG, QD
  9. RIVASTIGMINE [Concomitant]
     Dosage: 6 MG, BID
  10. RIVASTIGMINE [Concomitant]
     Dosage: 3 MG, BID
  11. RIVASTIGMINE [Concomitant]
     Dosage: 4.5 MG, BID
  12. KETOCONAZOLE [Concomitant]
  13. DIPROBASE CREAM [Concomitant]
     Dosage: UNK G, UNK
  14. E45 CREAM [Concomitant]
  15. CALOGEN                                 /SPA/ [Concomitant]
  16. SODIUM CHLORIDE [Concomitant]
  17. CAFILON [Concomitant]
     Dosage: UNK
  18. LANSOPRAZOLE [Concomitant]
     Dosage: 15 MG, QD
  19. TEMAZEPAM [Concomitant]
     Dosage: 10 MG, QD

REACTIONS (43)
  - ABASIA [None]
  - AGGRESSION [None]
  - AGITATION [None]
  - ANAEMIA [None]
  - AURICULAR SWELLING [None]
  - BALANCE DISORDER [None]
  - CANDIDIASIS [None]
  - DECREASED APPETITE [None]
  - DECUBITUS ULCER [None]
  - DERMATITIS [None]
  - DISORIENTATION [None]
  - ERYTHEMA [None]
  - EXCORIATION [None]
  - EXTERNAL EAR CELLULITIS [None]
  - EXTERNAL EAR INFLAMMATION [None]
  - EYE DISCHARGE [None]
  - EYE PAIN [None]
  - FALL [None]
  - GENERAL PHYSICAL HEALTH DETERIORATION [None]
  - HERPES ZOSTER [None]
  - HYPERKERATOSIS [None]
  - HYPOPHAGIA [None]
  - INFLAMMATION [None]
  - INSTILLATION SITE ERYTHEMA [None]
  - PAIN IN EXTREMITY [None]
  - POST PROCEDURAL CELLULITIS [None]
  - POST PROCEDURAL COMPLICATION [None]
  - POST PROCEDURAL DISCHARGE [None]
  - PRODUCTIVE COUGH [None]
  - RASH [None]
  - RHINITIS [None]
  - RHINORRHOEA [None]
  - SALIVARY HYPERSECRETION [None]
  - SCAB [None]
  - SKIN DISORDER [None]
  - SKIN EXFOLIATION [None]
  - SOCIAL AVOIDANT BEHAVIOUR [None]
  - SOMNOLENCE [None]
  - SPEECH DISORDER [None]
  - STREPTOCOCCAL INFECTION [None]
  - TREATMENT NONCOMPLIANCE [None]
  - WEIGHT DECREASED [None]
  - WOUND [None]
